FAERS Safety Report 21073424 (Version 1)
Quarter: 2022Q3

REPORT INFORMATION
  Report Type: Spontaneous
  Country: JP (occurrence: JP)
  Receive Date: 20220713
  Receipt Date: 20220713
  Transmission Date: 20221026
  Serious: Yes (Hospitalization)
  Sender: FDA-Public Use
  Company Number: JP-STRIDES ARCOLAB LIMITED-2022SP008694

PATIENT
  Age: 59 Year
  Sex: Male

DRUGS (23)
  1. OLANZAPINE [Interacting]
     Active Substance: OLANZAPINE
     Indication: Vomiting
     Dosage: 5 MILLIGRAM INTERMITTENTLY (FOR A FEW DAYS EVERY 2 WEEKS)
     Route: 065
  2. METOCLOPRAMIDE [Interacting]
     Active Substance: METOCLOPRAMIDE
     Indication: Nausea
     Dosage: 15 MILLIGRAM PER DAY
     Route: 065
  3. METOCLOPRAMIDE [Interacting]
     Active Substance: METOCLOPRAMIDE
     Indication: Prophylaxis of nausea and vomiting
  4. METOCLOPRAMIDE [Interacting]
     Active Substance: METOCLOPRAMIDE
     Indication: Vomiting
  5. QUETIAPINE [Suspect]
     Active Substance: QUETIAPINE
     Indication: Restlessness
     Dosage: 25 MILLIGRAM, TOTAL (25 MG ONLY ONCE)
     Route: 065
  6. QUETIAPINE [Suspect]
     Active Substance: QUETIAPINE
     Indication: Insomnia
  7. CLONAZEPAM [Concomitant]
     Active Substance: CLONAZEPAM
     Indication: Restlessness
     Dosage: 1.5 MILLIGRAM PER DAY
     Route: 065
  8. CLONAZEPAM [Concomitant]
     Active Substance: CLONAZEPAM
     Indication: Insomnia
  9. BROTIZOLAM [Concomitant]
     Active Substance: BROTIZOLAM
     Indication: Restlessness
     Dosage: 0.25 MILLIGRAM PER DAY
     Route: 065
  10. BROTIZOLAM [Concomitant]
     Active Substance: BROTIZOLAM
     Indication: Insomnia
  11. HERBALS [Concomitant]
     Active Substance: HERBALS
     Indication: Restlessness
     Dosage: UNK
     Route: 065
  12. HERBALS [Concomitant]
     Active Substance: HERBALS
     Indication: Insomnia
  13. EPERISONE HYDROCHLORIDE [Concomitant]
     Active Substance: EPERISONE HYDROCHLORIDE
     Indication: Restlessness
     Dosage: UNK
     Route: 065
  14. EPERISONE HYDROCHLORIDE [Concomitant]
     Active Substance: EPERISONE HYDROCHLORIDE
     Indication: Insomnia
  15. PALONOSETRON [Concomitant]
     Active Substance: PALONOSETRON
     Indication: Nausea
     Dosage: 0.75 MILLIGRAM
     Route: 065
  16. PALONOSETRON [Concomitant]
     Active Substance: PALONOSETRON
     Indication: Prophylaxis of nausea and vomiting
  17. PALONOSETRON [Concomitant]
     Active Substance: PALONOSETRON
     Indication: Vomiting
  18. DEXAMETHASONE [Concomitant]
     Active Substance: DEXAMETHASONE
     Indication: Nausea
     Dosage: 6.6 MILLIGRAM
     Route: 065
  19. DEXAMETHASONE [Concomitant]
     Active Substance: DEXAMETHASONE
     Indication: Prophylaxis of nausea and vomiting
  20. DEXAMETHASONE [Concomitant]
     Active Substance: DEXAMETHASONE
     Indication: Vomiting
  21. APREPITANT [Concomitant]
     Active Substance: APREPITANT
     Indication: Nausea
     Dosage: 125 MILLIGRAM OF APREPITANT ONCE AT THE START DAY OF CHEMOTHERAPY
     Route: 065
  22. APREPITANT [Concomitant]
     Active Substance: APREPITANT
     Indication: Prophylaxis of nausea and vomiting
     Dosage: 80 MILLIGRAM OF APREPITANT TWICE (ON THE SECOND AND THIRD DAY OF CHEMOTHERAPY), EVERY 2 WEEKS
     Route: 065
  23. APREPITANT [Concomitant]
     Active Substance: APREPITANT
     Indication: Vomiting

REACTIONS (3)
  - Extrapyramidal disorder [Recovered/Resolved]
  - Drug interaction [Unknown]
  - Off label use [Unknown]
